FAERS Safety Report 7300570-X (Version None)
Quarter: 2011Q1

REPORT INFORMATION
  Report Type: 
  Country: None (occurrence: None)
  Receive Date: 20110218
  Receipt Date: 20110202
  Transmission Date: 20110831
  Serious: No
  Sender: FDA-Public Use
  Company Number: US-BIOGENIDEC-2011BI001452

PATIENT
  Age: 40 Year
  Sex: Female

DRUGS (1)
  1. TYSABRI [Suspect]
     Indication: MULTIPLE SCLEROSIS
     Route: 042
     Dates: start: 20100617

REACTIONS (7)
  - HYPOTENSION [None]
  - HEADACHE [None]
  - ASTHENIA [None]
  - WEIGHT INCREASED [None]
  - DECREASED APPETITE [None]
  - TREMOR [None]
  - FATIGUE [None]
